FAERS Safety Report 5930160-2 (Version None)
Quarter: 2008Q4

REPORT INFORMATION
  Report Type: 
  Country: None (occurrence: None)
  Receive Date: 20081021
  Receipt Date: 20081010
  Transmission Date: 20090506
  Serious: Yes (Hospitalization)
  Sender: FDA-Public Use
  Company Number: 230613K08USA

PATIENT
  Age: 59 Year
  Sex: Female
  Weight: 91 kg

DRUGS (5)
  1. REBIF [Suspect]
     Indication: MULTIPLE SCLEROSIS
     Dosage: 44 MCG, 3 IN 1 WEEKS, SUBCUTANEOUS
     Route: 058
     Dates: start: 20060410, end: 20080901
  2. LISINOPRIL [Concomitant]
  3. METFORMIN HCL [Concomitant]
  4. NORVASC [Concomitant]
  5. LIPITOR [Concomitant]

REACTIONS (2)
  - SMALL INTESTINAL OBSTRUCTION [None]
  - WHITE BLOOD CELL COUNT INCREASED [None]
